FAERS Safety Report 10484213 (Version 1)
Quarter: 2014Q3

REPORT INFORMATION
  Report Type: Spontaneous
  Country: US (occurrence: US)
  Receive Date: 20140930
  Receipt Date: 20140930
  Transmission Date: 20150326
  Serious: Yes (Other)
  Sender: FDA-Public Use
  Company Number: US-ASTRAZENECA-2014SE71072

PATIENT
  Sex: Male

DRUGS (2)
  1. SYMBICORT [Suspect]
     Active Substance: BUDESONIDE\FORMOTEROL FUMARATE DIHYDRATE
     Indication: CHRONIC OBSTRUCTIVE PULMONARY DISEASE
     Dosage: 2 PUFFS BID
     Route: 055
  2. SYMBICORT [Suspect]
     Active Substance: BUDESONIDE\FORMOTEROL FUMARATE DIHYDRATE
     Indication: LUNG DISORDER
     Dosage: 2 PUFFS BID
     Route: 055

REACTIONS (4)
  - General physical health deterioration [Unknown]
  - Intentional product misuse [Unknown]
  - Dyspnoea [Not Recovered/Not Resolved]
  - Hypersensitivity [Not Recovered/Not Resolved]
